FAERS Safety Report 7938214-6 (Version None)
Quarter: 2011Q4

REPORT INFORMATION
  Report Type: 
  Country: None (occurrence: None)
  Receive Date: 20111123
  Receipt Date: 20110831
  Transmission Date: 20120403
  Serious: No
  Sender: FDA-Public Use
  Company Number: US-BRISTOL-MYERS SQUIBB COMPANY-16024507

PATIENT
  Age: 74 Year
  Sex: Female
  Weight: 82 kg

DRUGS (6)
  1. ONGLYZA [Suspect]
     Indication: TYPE 2 DIABETES MELLITUS
     Route: 048
     Dates: start: 20110830
  2. GLIMEPIRIDE [Concomitant]
     Dosage: STARTED FOR 4-5 YEARS
     Route: 048
  3. AMLODIPINE [Concomitant]
  4. METFORMIN HCL [Suspect]
     Dosage: 4 YEARS AGO,METFORMIN ER 500MG TAB AMN
     Route: 048
     Dates: end: 20110801
  5. METOPROLOL TARTRATE [Concomitant]
  6. SYNTHROID [Concomitant]

REACTIONS (4)
  - DIARRHOEA [None]
  - DIVERTICULUM [None]
  - DRUG INEFFECTIVE [None]
  - BLOOD GLUCOSE INCREASED [None]
